FAERS Safety Report 20552403 (Version 1)
Quarter: 2022Q1

REPORT INFORMATION
  Report Type: Spontaneous
  Country: US (occurrence: None)
  Receive Date: 20220303
  Receipt Date: 20220303
  Transmission Date: 20220423
  Serious: Yes (Other)
  Sender: FDA-Public Use
  Company Number: None

PATIENT
  Age: 67 Year
  Sex: Female
  Weight: 80.74 kg

DRUGS (3)
  1. MESNEX [Suspect]
     Active Substance: MESNA
     Indication: Cystitis haemorrhagic
     Dosage: FREQUENCY : TWICE A DAY;?
     Route: 048
     Dates: start: 20220303
  2. MESNEX [Suspect]
     Active Substance: MESNA
     Indication: Prophylaxis
  3. IFEX [Concomitant]
     Active Substance: IFOSFAMIDE

REACTIONS (2)
  - Disease progression [None]
  - Therapy interrupted [None]
